FAERS Safety Report 10606730 (Version 1)
Quarter: 2014Q4

REPORT INFORMATION
  Report Type: Spontaneous
  Country: US (occurrence: None)
  Receive Date: 20141124
  Receipt Date: 20141124
  Transmission Date: 20150529
  Serious: Yes (Hospitalization)
  Sender: FDA-Public Use
  Company Number: None

PATIENT
  Age: 63 Year
  Sex: Male
  Weight: 62.3 kg

DRUGS (13)
  1. EXPAREL [Suspect]
     Active Substance: BUPIVACAINE
     Indication: PROCEDURAL PAIN
     Dosage: 20 ML, ONCE - POST OP., SUBCUTANEOUSLY
     Route: 058
     Dates: start: 20131209
  2. DOCUSATE [Concomitant]
     Active Substance: DOCUSATE
  3. FENTANYL/NS (IV) [Concomitant]
  4. TYLENOL [Concomitant]
     Active Substance: ACETAMINOPHEN
  5. FAMOTIDINE. [Concomitant]
     Active Substance: FAMOTIDINE
  6. HEPARIN [Concomitant]
     Active Substance: HEPARIN SODIUM
  7. FLUCONAZOLE IN NACI (IV) [Concomitant]
  8. HYDROCORTISONE. [Concomitant]
     Active Substance: HYDROCORTISONE
  9. ALBUTEROL SULFATE. [Concomitant]
     Active Substance: ALBUTEROL SULFATE
  10. FENTANYL CITRATE (IV) [Concomitant]
  11. FLUTICASONE/SALMETEROL [Concomitant]
     Active Substance: FLUTICASONE PROPIONATE\SALMETEROL XINAFOATE
  12. ALBUTEEROL/IPRATROPIUM ??? [Concomitant]
  13. FUROSEMIDE 20MG [Concomitant]
     Active Substance: FUROSEMIDE

REACTIONS (9)
  - Anaemia [None]
  - Wound secretion [None]
  - Abdominal abscess [None]
  - Anastomotic leak [None]
  - Post procedural complication [None]
  - Chronic obstructive pulmonary disease [None]
  - Dehydration [None]
  - Decreased appetite [None]
  - Gastroenteritis [None]

NARRATIVE: CASE EVENT DATE: 20140103
